FAERS Safety Report 15238253 (Version 1)
Quarter: 2018Q3

REPORT INFORMATION
  Report Type: Other
  Country: None (occurrence: US)
  Receive Date: 20180803
  Receipt Date: 20180803
  Transmission Date: 20181010
  Serious: Yes (Other)
  Sender: FDA-Public Use
  Company Number: US-MEDAC PHARMA, INC.-2053173

PATIENT
  Age: 71 Year
  Sex: Male

DRUGS (3)
  1. METHOTREXATE. [Suspect]
     Active Substance: METHOTREXATE
     Indication: RHEUMATOID ARTHRITIS
  2. HYDROXYCHLOROQUINE SULFATE. [Concomitant]
     Active Substance: HYDROXYCHLOROQUINE SULFATE
  3. INFLIXIMAB [Suspect]
     Active Substance: INFLIXIMAB

REACTIONS (5)
  - Disseminated intravascular coagulation [Unknown]
  - Acute kidney injury [Unknown]
  - Histiocytosis haematophagic [Recovering/Resolving]
  - Lactic acidosis [Unknown]
  - Histoplasmosis disseminated [Recovering/Resolving]
